FAERS Safety Report 15309026 (Version 2)
Quarter: 2018Q3

REPORT INFORMATION
  Report Type: Report from Study
  Country: US (occurrence: US)
  Receive Date: 20180823
  Receipt Date: 20180910
  Transmission Date: 20181010
  Serious: No
  Sender: FDA-Public Use
  Company Number: US-AMGEN-USASL2018115476

PATIENT
  Age: 66 Year
  Sex: Male
  Weight: 86.2 kg

DRUGS (2)
  1. ENBREL [Suspect]
     Active Substance: ETANERCEPT
     Indication: PRODUCT USED FOR UNKNOWN INDICATION
     Dosage: UNK
     Route: 065
  2. ENBREL [Suspect]
     Active Substance: ETANERCEPT
     Dosage: UNK
     Route: 065
     Dates: start: 2018, end: 2018

REACTIONS (6)
  - Anogenital warts [Recovered/Resolved]
  - Seborrhoeic dermatitis [Unknown]
  - Drug effect decreased [Unknown]
  - Photodermatosis [Unknown]
  - Actinic keratosis [Unknown]
  - Psoriasis [Not Recovered/Not Resolved]
